FAERS Safety Report 5263826-0 (Version None)
Quarter: 2007Q1

REPORT INFORMATION
  Report Type: 
  Country: None (occurrence: None)
  Receive Date: 20070313
  Receipt Date: 20070302
  Transmission Date: 20070707
  Serious: Yes (Hospitalization)
  Sender: FDA-Public Use
  Company Number: FR-GLAXOSMITHKLINE-B0455989A

PATIENT
  Age: 62 Year
  Sex: Male
  Weight: 90 kg

DRUGS (9)
  1. AVANDAMET [Suspect]
     Indication: DIABETES MELLITUS NON-INSULIN-DEPENDENT
     Dosage: 2TAB PER DAY
     Route: 048
     Dates: start: 20041101, end: 20060101
  2. LASIX [Concomitant]
     Route: 065
  3. COZAAR [Concomitant]
     Dosage: 100MG PER DAY
     Route: 048
     Dates: start: 20000101
  4. DIGOXIN [Concomitant]
     Dosage: 1TAB PER DAY
     Route: 048
     Dates: start: 20000101
  5. PREVISCAN [Concomitant]
     Dosage: 1TAB PER DAY
     Route: 048
     Dates: start: 20000101
  6. LIPANTHYL [Concomitant]
     Dosage: 160MG PER DAY
     Route: 048
     Dates: start: 20000101
  7. ALLOPURINOL [Concomitant]
     Dosage: 300MG PER DAY
     Route: 048
     Dates: start: 20000101
  8. MEDIATENSYL [Concomitant]
     Dosage: 60MG PER DAY
     Route: 048
     Dates: start: 20000101
  9. AMIODARONE HCL [Concomitant]
     Dosage: 1TAB PER DAY
     Route: 048
     Dates: start: 20000101

REACTIONS (2)
  - CARDIAC FAILURE [None]
  - MALAISE [None]
